FAERS Safety Report 7071035-8 (Version None)
Quarter: 2010Q4

REPORT INFORMATION
  Report Type: 
  Country: None (occurrence: None)
  Receive Date: 20101029
  Receipt Date: 20101025
  Transmission Date: 20110411
  Serious: No
  Sender: FDA-Public Use
  Company Number: US-PFIZER INC-2010136255

PATIENT
  Sex: Male

DRUGS (2)
  1. LIPITOR [Suspect]
     Dosage: 40 MG, UNK
  2. AMIODARONE [Concomitant]
     Dosage: UNK

REACTIONS (2)
  - ASTHENIA [None]
  - MUSCULOSKELETAL PAIN [None]
